FAERS Safety Report 9400348 (Version 1)
Quarter: 2013Q3

REPORT INFORMATION
  Report Type: Spontaneous
  Country: PL (occurrence: PL)
  Receive Date: 20130715
  Receipt Date: 20130715
  Transmission Date: 20140515
  Serious: Yes (Death, Hospitalization)
  Sender: FDA-Public Use
  Company Number: PL-ABBOTT-13X-129-1119209-00

PATIENT
  Age: 40 Year
  Sex: Female

DRUGS (1)
  1. DEPAKINE CHRONO [Suspect]
     Indication: EPILEPSY
     Route: 048
     Dates: end: 20130429

REACTIONS (2)
  - Anaemia [Fatal]
  - Thrombocytopenia [Unknown]
